FAERS Safety Report 25494814 (Version 5)
Quarter: 2025Q3

REPORT INFORMATION
  Report Type: Spontaneous
  Country: GB (occurrence: GB)
  Receive Date: 20250630
  Receipt Date: 20250725
  Transmission Date: 20251021
  Serious: Yes (Death, Other)
  Sender: SANOFI AVENTIS
  Company Number: None

PATIENT
  Age: 59 Year
  Sex: Male
  Weight: 95 kg

DRUGS (4)
  1. ENOXAPARIN SODIUM [Suspect]
     Active Substance: ENOXAPARIN SODIUM
     Indication: Hip arthroplasty
     Dosage: 40 MG, QD
     Dates: start: 20250605, end: 20250617
  2. ENOXAPARIN SODIUM [Suspect]
     Active Substance: ENOXAPARIN SODIUM
     Indication: Thrombosis prophylaxis
     Dates: start: 20250612
  3. OXYCODONE [Concomitant]
     Active Substance: OXYCODONE
     Indication: Analgesic therapy
     Dates: start: 20250606, end: 20250620
  4. OXYCODONE [Concomitant]
     Active Substance: OXYCODONE
     Dates: start: 20250606, end: 20250620

REACTIONS (29)
  - Multiple organ dysfunction syndrome [Fatal]
  - Heparin-induced thrombocytopenia [Fatal]
  - Renal infarct [Fatal]
  - Peripheral ischaemia [Fatal]
  - Skin discolouration [Fatal]
  - Hypoaesthesia [Fatal]
  - Aortic occlusion [Fatal]
  - Cardiomyopathy [Fatal]
  - Pulmonary embolism [Fatal]
  - Aortic thrombosis [Fatal]
  - Rheumatoid arthritis [Fatal]
  - Pulmonary thrombosis [Fatal]
  - Renal impairment [Unknown]
  - Loss of consciousness [Unknown]
  - Peripheral swelling [Fatal]
  - Pain [Unknown]
  - Malaise [Unknown]
  - Abdominal pain upper [Unknown]
  - Back pain [Unknown]
  - Fatigue [Unknown]
  - Mobility decreased [Unknown]
  - Adrenal disorder [Unknown]
  - Gastrointestinal inflammation [Unknown]
  - Pallor [Unknown]
  - Tachycardia [Unknown]
  - Hypertension [Unknown]
  - Chromaturia [Unknown]
  - Pulse abnormal [Unknown]
  - Platelet count decreased [Unknown]

NARRATIVE: CASE EVENT DATE: 20250606
